FAERS Safety Report 7323690-2 (Version None)
Quarter: 2011Q1

REPORT INFORMATION
  Report Type: 
  Country: None (occurrence: None)
  Receive Date: 20110301
  Receipt Date: 20100827
  Transmission Date: 20110831
  Serious: Yes (Hospitalization, Other)
  Sender: FDA-Public Use
  Company Number: US-BAYER-201024603NA

PATIENT
  Sex: Female
  Weight: 99.773 kg

DRUGS (6)
  1. YAZ [Suspect]
     Indication: PRODUCT USED FOR UNKNOWN INDICATION
     Route: 048
     Dates: start: 20060101, end: 20090201
  2. YASMIN [Suspect]
     Indication: ORAL CONTRACEPTION
     Route: 048
     Dates: start: 20060101, end: 20090201
  3. METFORMIN HYDROCHLORIDE [Concomitant]
     Dosage: 500 MG, BID
  4. ST. JOHN'S WORT [Concomitant]
  5. TRINESSA [Concomitant]
     Dosage: UNK UNK, QD
  6. LEVOTHYROXINE SODIUM [Concomitant]
     Dosage: 75 ?G, UNK

REACTIONS (5)
  - THROMBOSIS [None]
  - HAEMARTHROSIS [None]
  - CHOLECYSTECTOMY [None]
  - CHEST PAIN [None]
  - PULMONARY EMBOLISM [None]
